FAERS Safety Report 9685643 (Version 1)
Quarter: 2013Q4

REPORT INFORMATION
  Report Type: Spontaneous
  Country: US (occurrence: US)
  Receive Date: 20131113
  Receipt Date: 20131113
  Transmission Date: 20140711
  Serious: No
  Sender: FDA-Public Use
  Company Number: US-GLAXOSMITHKLINE-A1034104A

PATIENT
  Age: 78 Year
  Sex: Female

DRUGS (3)
  1. CARVEDILOL [Suspect]
     Indication: HYPERTENSION
     Dosage: 6.25MG PER DAY
     Route: 048
     Dates: start: 2009, end: 2009
  2. COREG [Suspect]
     Indication: HYPERTENSION
     Dosage: 6.25MG TWICE PER DAY
     Route: 048
     Dates: start: 2007
  3. NO CONCURRENT MEDICATION [Concomitant]

REACTIONS (3)
  - Asthenia [Recovered/Resolved]
  - Joint swelling [Unknown]
  - Cough [Unknown]
